FAERS Safety Report 4556969-8 (Version None)
Quarter: 2005Q1

REPORT INFORMATION
  Report Type: 
  Country: None (occurrence: None)
  Receive Date: 20050114
  Receipt Date: 20050105
  Transmission Date: 20050727
  Serious: Yes (Hospitalization, Other)
  Sender: FDA-Public Use
  Company Number: 2004-12-0356

PATIENT
  Age: 54 Year
  Sex: Female
  Weight: 60.782 kg

DRUGS (2)
  1. PEG-INTRON [Suspect]
     Indication: HEPATITIS C
     Dosage: 120 MCG SUBCUTANEOUS
     Route: 058
     Dates: start: 20040501, end: 20041001
  2. RIBAVIRIN [Suspect]
     Indication: HEPATITIS C
     Dosage: 1000 MG ORAL
     Route: 048
     Dates: start: 20040501, end: 20041001

REACTIONS (4)
  - CATARACT [None]
  - HAEMOLYTIC ANAEMIA [None]
  - MACULAR OEDEMA [None]
  - RETINITIS [None]
